FAERS Safety Report 9741436 (Version 1)
Quarter: 2013Q4

REPORT INFORMATION
  Report Type: Report from Study
  Country: AR (occurrence: AR)
  Receive Date: 20131209
  Receipt Date: 20131209
  Transmission Date: 20140711
  Serious: Yes (Other)
  Sender: FDA-Public Use
  Company Number: PHHY2013AR143498

PATIENT
  Sex: Male

DRUGS (2)
  1. EXFORGE [Suspect]
     Indication: HYPERTENSION
     Dosage: 1 DF (160/5MG) DAILY
     Route: 048
  2. EXFORGE [Suspect]
     Dosage: 2 DF (160/5MG) DAILY, SOMETIMES

REACTIONS (2)
  - Patella fracture [Recovering/Resolving]
  - Fall [Unknown]
